FAERS Safety Report 5511174-3 (Version None)
Quarter: 2007Q4

REPORT INFORMATION
  Report Type: 
  Country: None (occurrence: None)
  Receive Date: 20071109
  Receipt Date: 20071025
  Transmission Date: 20080405
  Serious: Yes (Disabling)
  Sender: FDA-Public Use
  Company Number: DE-ELI_LILLY_AND_COMPANY-DE200708003009

PATIENT
  Sex: Male

DRUGS (1)
  1. CEFACLOR [Suspect]
     Dosage: 500 MG, 3/D
     Route: 048
     Dates: start: 20070122

REACTIONS (1)
  - MONOPLEGIA [None]
